FAERS Safety Report 7036878-5 (Version None)
Quarter: 2010Q4

REPORT INFORMATION
  Report Type: 
  Country: None (occurrence: None)
  Receive Date: 20101011
  Receipt Date: 20101004
  Transmission Date: 20110411
  Serious: Yes (Hospitalization)
  Sender: FDA-Public Use
  Company Number: JP-BAYER-201014746BYL

PATIENT
  Age: 64 Year
  Sex: Male
  Weight: 66 kg

DRUGS (8)
  1. NEXAVAR [Suspect]
     Indication: HEPATIC NEOPLASM MALIGNANT
     Dosage: TOTAL DAILY DOSE: 800 MG  UNIT DOSE: 200 MG
     Route: 048
     Dates: start: 20100814, end: 20100907
  2. NEXAVAR [Suspect]
     Dosage: TOTAL DAILY DOSE: 800 MG  UNIT DOSE: 200 MG
     Route: 048
  3. URSODESOXYCHOLIC ACID [Concomitant]
     Dosage: TOTAL DAILY DOSE: 1800 MG
     Route: 065
     Dates: start: 20051027
  4. FAMOTIDINE [Concomitant]
     Dosage: TOTAL DAILY DOSE: 80 MG
     Route: 065
     Dates: start: 20080913
  5. LACTITOL HYDRATE [Concomitant]
     Dosage: TOTAL DAILY DOSE: 54 MG
     Route: 065
     Dates: start: 20080215
  6. BASEN OD [Concomitant]
     Dosage: TOTAL DAILY DOSE: 0.8 MG
     Route: 048
     Dates: start: 20080913
  7. AMINOLEBAN [Concomitant]
     Dosage: TOTAL DAILY DOSE: 50 MG
     Route: 048
     Dates: start: 20080215
  8. UREA [Concomitant]
     Route: 065
     Dates: start: 20100814

REACTIONS (1)
  - HEPATIC ENCEPHALOPATHY [None]
